FAERS Safety Report 8793947 (Version 1)
Quarter: 2012Q4

REPORT INFORMATION
  Report Type: 
  Country: US (occurrence: US)
  Receive Date: 20120917
  Receipt Date: 20120917
  Transmission Date: 20130627
  Serious: Yes (Hospitalization)
  Sender: FDA-Public Use
  Company Number: PHEH2012US017955

PATIENT
  Sex: Male

DRUGS (8)
  1. DIOVAN [Suspect]
     Dosage: 2 DF (each morning), UNK
  2. HYDROCODONE [Concomitant]
  3. ALPRAZOLAM [Concomitant]
  4. TESTIM [Concomitant]
  5. VITAMIN B12 [Concomitant]
  6. VITAMIN E [Concomitant]
  7. FISH OIL [Concomitant]
  8. OMEGA 3 [Concomitant]

REACTIONS (1)
  - Sexual dysfunction [Unknown]
